FAERS Safety Report 6673413-5 (Version None)
Quarter: 2010Q2

REPORT INFORMATION
  Report Type: 
  Country: None (occurrence: None)
  Receive Date: 20100408
  Receipt Date: 20100329
  Transmission Date: 20101027
  Serious: Yes (Other)
  Sender: FDA-Public Use
  Company Number: US-PFIZER INC-2010040649

PATIENT
  Sex: Female
  Weight: 65.8 kg

DRUGS (3)
  1. LIPITOR [Suspect]
     Indication: BLOOD CHOLESTEROL INCREASED
     Dosage: 80 MG, 1X/DAY
     Route: 048
     Dates: start: 20011001
  2. ATENOLOL [Concomitant]
     Dosage: 50 MG, UNK
  3. BUSPIRONE [Concomitant]
     Dosage: 15 MG, UNK

REACTIONS (2)
  - ARTHRITIS [None]
  - LIVER DISORDER [None]
